FAERS Safety Report 10956339 (Version 1)
Quarter: 2015Q1

REPORT INFORMATION
  Report Type: Spontaneous
  Country: None (occurrence: None)
  Receive Date: 20150325
  Receipt Date: 20150325
  Transmission Date: 20150721
  Serious: Yes (Hospitalization)
  Sender: FDA-Public Use
  Company Number: None

PATIENT
  Age: 82 Year
  Sex: Female

DRUGS (1)
  1. BACTRIM DS [Suspect]
     Active Substance: SULFAMETHOXAZOLE\TRIMETHOPRIM
     Indication: CELLULITIS
     Dosage: 1 PILL
     Route: 048
     Dates: start: 20141105, end: 20141108

REACTIONS (3)
  - Dizziness [None]
  - Hallucination, visual [None]
  - Decreased appetite [None]

NARRATIVE: CASE EVENT DATE: 20141109
